FAERS Safety Report 8620917-1 (Version None)
Quarter: 2012Q3

REPORT INFORMATION
  Report Type: 
  Country: None (occurrence: None)
  Receive Date: 20120824
  Receipt Date: 20120816
  Transmission Date: 20120928
  Serious: Yes (Hospitalization, Disabling, Other)
  Sender: FDA-Public Use
  Company Number: US-009507513-2011SP046646

PATIENT

DRUGS (5)
  1. NUVARING [Suspect]
     Indication: CONTRACEPTION
     Dosage: UNK
     Route: 067
     Dates: start: 20080601
  2. NUVARING [Suspect]
     Indication: MENSTRUATION IRREGULAR
     Dosage: 0.120-0.015 MG
     Route: 067
     Dates: start: 20081230, end: 20090901
  3. GLUCOPHAGE [Concomitant]
     Indication: PRODUCT USED FOR UNKNOWN INDICATION
     Dosage: 500 MG, TID
  4. CYMBALTA [Concomitant]
     Indication: DEPRESSION
     Dosage: 60 MG, BID
     Dates: end: 20091101
  5. VITAMINS (UNSPECIFIED) [Concomitant]
     Indication: PRODUCT USED FOR UNKNOWN INDICATION

REACTIONS (41)
  - PELVIC PAIN [None]
  - URINARY TRACT INFECTION [None]
  - VULVOVAGINAL CANDIDIASIS [None]
  - BALANCE DISORDER [None]
  - HYPERTENSION [None]
  - POLYMENORRHOEA [None]
  - MENISCUS LESION [None]
  - PAIN IN EXTREMITY [None]
  - SNORING [None]
  - BRAIN OEDEMA [None]
  - INFLUENZA [None]
  - DYSPEPSIA [None]
  - AGITATION [None]
  - INTRACRANIAL VENOUS SINUS THROMBOSIS [None]
  - CEREBRAL INFARCTION [None]
  - DIZZINESS [None]
  - STRESS URINARY INCONTINENCE [None]
  - CYSTOCELE [None]
  - ANAEMIA [None]
  - CLAUSTROPHOBIA [None]
  - HYPERCOAGULATION [None]
  - CONVULSION [None]
  - COGNITIVE DISORDER [None]
  - HEADACHE [None]
  - HYPERSOMNIA [None]
  - DYSPNOEA EXERTIONAL [None]
  - ALOPECIA [None]
  - RESPIRATORY FAILURE [None]
  - INADEQUATE DIET [None]
  - EAR PAIN [None]
  - BACK PAIN [None]
  - DEPRESSION [None]
  - TRANSIENT ISCHAEMIC ATTACK [None]
  - ENDOMETRIAL HYPERTROPHY [None]
  - ANXIETY [None]
  - TREATMENT NONCOMPLIANCE [None]
  - JOINT DISLOCATION [None]
  - ADVERSE DRUG REACTION [None]
  - SLEEP DISORDER [None]
  - HYPERLIPIDAEMIA [None]
  - SEASONAL ALLERGY [None]
